FAERS Safety Report 10754872 (Version 1)
Quarter: 2015Q1

REPORT INFORMATION
  Report Type: Spontaneous
  Country: US (occurrence: None)
  Receive Date: 20150130
  Receipt Date: 20150130
  Transmission Date: 20150721
  Serious: Yes (Other)
  Sender: FDA-Public Use
  Company Number: None

PATIENT
  Age: 32 Year
  Sex: Female
  Weight: 58.97 kg

DRUGS (1)
  1. LAMICTAL [Suspect]
     Active Substance: LAMOTRIGINE
     Indication: AFFECTIVE DISORDER
     Dosage: 1 TABLET
     Route: 048

REACTIONS (5)
  - Headache [None]
  - Depressed mood [None]
  - Affective disorder [None]
  - Irritability [None]
  - Nausea [None]

NARRATIVE: CASE EVENT DATE: 20121105
